FAERS Safety Report 5931944-7 (Version None)
Quarter: 2008Q4

REPORT INFORMATION
  Report Type: 
  Country: None (occurrence: None)
  Receive Date: 20081027
  Receipt Date: 20081018
  Transmission Date: 20090506
  Serious: Yes (Hospitalization, Other)
  Sender: FDA-Public Use
  Company Number: PHHY2008MX25381

PATIENT
  Age: 56 Year
  Sex: Female

DRUGS (4)
  1. DIOVAN HCT [Suspect]
     Indication: HYPERTENSION
     Dosage: 1 DF, QD
     Route: 048
     Dates: start: 20060601, end: 20080821
  2. DIOVAN HCT [Suspect]
     Dosage: UNK
     Route: 048
     Dates: start: 20080826
  3. ASPIRIN [Concomitant]
     Indication: CARDIOVASCULAR DISORDER
     Dosage: UNK
     Dates: start: 20050101
  4. VENALOT (COUMARIN) [Concomitant]
     Indication: CARDIOVASCULAR DISORDER
     Dosage: UNK
     Dates: start: 20050101

REACTIONS (4)
  - FALL [None]
  - HIP SURGERY [None]
  - JOINT INJURY [None]
  - KNEE OPERATION [None]
